FAERS Safety Report 7749856-5 (Version None)
Quarter: 2011Q3

REPORT INFORMATION
  Report Type: 
  Country: None (occurrence: None)
  Receive Date: 20110914
  Receipt Date: 20110909
  Transmission Date: 20111222
  Serious: Yes (Hospitalization)
  Sender: FDA-Public Use
  Company Number: JP-ROCHE-801953

PATIENT
  Age: 70 Year
  Sex: Male

DRUGS (2)
  1. MIRCERA [Suspect]
     Indication: NEPHROGENIC ANAEMIA
     Route: 042
     Dates: start: 20110701, end: 20110801
  2. ANTIHYPERTENSIVE AGENTS [Concomitant]
     Dosage: NOTE: DOSAGE WAS UNCERTAIN
     Route: 065

REACTIONS (1)
  - CEREBRAL HAEMORRHAGE [None]
